FAERS Safety Report 13151332 (Version 1)
Quarter: 2017Q1

REPORT INFORMATION
  Report Type: Spontaneous
  Country: US (occurrence: US)
  Receive Date: 20170125
  Receipt Date: 20170125
  Transmission Date: 20170428
  Serious: No
  Sender: FDA-Public Use
  Company Number: US-KADMON PHARMACEUTICALS, LLC-KAD201601-000214

PATIENT
  Age: 48 Year
  Sex: Female

DRUGS (7)
  1. CITALOPRAM [Concomitant]
     Active Substance: CITALOPRAM HYDROBROMIDE
  2. IBUPROFEN. [Concomitant]
     Active Substance: IBUPROFEN
  3. VIEKIRA PAK [Suspect]
     Active Substance: DASABUVIR\OMBITASVIR\PARITAPREVIR\RITONAVIR
     Indication: HEPATITIS C
     Route: 048
     Dates: start: 20160104
  4. AMITRIPTYLINE [Concomitant]
     Active Substance: AMITRIPTYLINE
     Indication: HEADACHE
  5. ALBUTEROL. [Concomitant]
     Active Substance: ALBUTEROL
  6. RIBAVIRIN. [Suspect]
     Active Substance: RIBAVIRIN
     Indication: HEPATITIS C
     Route: 048
     Dates: start: 20160104
  7. CLONAZEPAM. [Concomitant]
     Active Substance: CLONAZEPAM

REACTIONS (2)
  - Nausea [Unknown]
  - Dyspepsia [Unknown]

NARRATIVE: CASE EVENT DATE: 201601
